FAERS Safety Report 9913953 (Version 1)
Quarter: 2014Q1

REPORT INFORMATION
  Report Type: Report from Study
  Country: ES (occurrence: JP)
  Receive Date: 20140220
  Receipt Date: 20140220
  Transmission Date: 20141002
  Serious: Yes (Other)
  Sender: FDA-Public Use
  Company Number: JP-FRI-1000050647

PATIENT
  Age: 28 Year
  Sex: Female
  Weight: 46.3 kg

DRUGS (1)
  1. LINACLOTIDE [Suspect]
     Indication: IRRITABLE BOWEL SYNDROME
     Dosage: 0.0625 MG
     Route: 048
     Dates: start: 20130830, end: 20130918

REACTIONS (2)
  - Abortion spontaneous [Recovered/Resolved]
  - Exposure during pregnancy [Recovered/Resolved]
